FAERS Safety Report 6320057-0 (Version None)
Quarter: 2009Q3

REPORT INFORMATION
  Report Type: 
  Country: None (occurrence: None)
  Receive Date: 20090822
  Receipt Date: 20081016
  Transmission Date: 20100115
  Serious: No
  Sender: FDA-Public Use
  Company Number: US-ABBOTT-08P-163-0482314-00

PATIENT
  Sex: Female

DRUGS (2)
  1. NIASPAN [Suspect]
     Indication: BLOOD CHOLESTEROL INCREASED
     Route: 048
     Dates: start: 20080801
  2. PROPYL-THIOURACIL [Suspect]
     Indication: THYROID DISORDER
     Route: 048
     Dates: start: 20070101, end: 20081013

REACTIONS (2)
  - HYPOTHYROIDISM [None]
  - ILL-DEFINED DISORDER [None]
